FAERS Safety Report 10236763 (Version 1)
Quarter: 2014Q1

REPORT INFORMATION
  Report Type: Spontaneous
  Country: US (occurrence: None)
  Receive Date: 20140306
  Receipt Date: 20140306
  Transmission Date: 20141002
  Serious: Yes (Hospitalization)
  Sender: FDA-Public Use
  Company Number: 163-21880-13092367

PATIENT
  Age: 74 Year
  Sex: Male
  Weight: 67.1 kg

DRUGS (2)
  1. REVLIMID (LENALIDOMIDE) (CAPSULES) [Suspect]
     Indication: PLASMA CELL MYELOMA
     Dosage: 25 MG, 14 IN 21 D, PO  07/31/2013 - ONGOING THERAPY DATES
     Route: 048
     Dates: start: 20130731
  2. BLOOD (BLOOD AND RELATED PRODUCTS) [Concomitant]

REACTIONS (7)
  - Haemorrhoidal haemorrhage [None]
  - Herpes zoster [None]
  - Platelet count decreased [None]
  - Local swelling [None]
  - Asthenia [None]
  - Hypoaesthesia [None]
  - Pain in extremity [None]
